FAERS Safety Report 9392803 (Version 1)
Quarter: 2013Q3

REPORT INFORMATION
  Report Type: Spontaneous
  Country: US (occurrence: None)
  Receive Date: 20130708
  Receipt Date: 20130708
  Transmission Date: 20140515
  Serious: Yes (Life-Threatening, Hospitalization, Other)
  Sender: FDA-Public Use
  Company Number: None

PATIENT
  Age: 73 Year
  Sex: Male
  Weight: 119 kg

DRUGS (2)
  1. LAMISIL [Suspect]
     Indication: FUNGAL INFECTION
     Dates: start: 20130501, end: 20130528
  2. TENBINAFINE  250MG [Concomitant]

REACTIONS (3)
  - Weight decreased [None]
  - Eating disorder [None]
  - Liver disorder [None]
